FAERS Safety Report 4448021-7 (Version None)
Quarter: 2004Q3

REPORT INFORMATION
  Report Type: 
  Country: None (occurrence: None)
  Receive Date: 20040813
  Receipt Date: 20040624
  Transmission Date: 20050211
  Serious: No
  Sender: FDA-Public Use
  Company Number: S04-USA-03770-01

PATIENT
  Age: 93 Year
  Sex: Female

DRUGS (11)
  1. NAMENDA [Suspect]
     Indication: DEMENTIA
     Dosage: 5 MG QD PO
     Route: 048
     Dates: start: 20040601, end: 20040607
  2. NAMENDA [Suspect]
     Indication: DEMENTIA
     Dosage: 10 MG QD PO
     Route: 048
     Dates: start: 20040608, end: 20040614
  3. NAMENDA [Suspect]
     Indication: DEMENTIA
     Dosage: 15 MG QD PO
     Route: 048
     Dates: start: 20040615, end: 20040621
  4. NAMENDA [Suspect]
     Indication: DEMENTIA
     Dosage: 20 MG QD PO
     Route: 048
     Dates: start: 20040622, end: 20040623
  5. PLAVIX [Concomitant]
  6. TOPROL-XL [Concomitant]
  7. LORAZEPAM [Concomitant]
  8. VITAMIN E [Concomitant]
  9. ACETYL-L-CARNITINE [Concomitant]
  10. MELATONIN [Concomitant]
  11. SLEEPING PILL [Concomitant]

REACTIONS (2)
  - AGGRESSION [None]
  - DIFFICULTY IN WALKING [None]
